FAERS Safety Report 7699017-3 (Version None)
Quarter: 2011Q3

REPORT INFORMATION
  Report Type: 
  Country: None (occurrence: None)
  Receive Date: 20110819
  Receipt Date: 20110812
  Transmission Date: 20111222
  Serious: Yes (Other)
  Sender: FDA-Public Use
  Company Number: US-ROCHE-778370

PATIENT
  Sex: Female
  Weight: 61.2 kg

DRUGS (3)
  1. ACCUTANE [Suspect]
     Indication: ACNE
     Route: 065
     Dates: start: 19980101, end: 19980630
  2. AZELEX [Concomitant]
  3. ORTHO TRI-CYCLEN [Concomitant]

REACTIONS (6)
  - INFLAMMATORY BOWEL DISEASE [None]
  - COLITIS ULCERATIVE [None]
  - IRRITABLE BOWEL SYNDROME [None]
  - LIP DRY [None]
  - RECTAL POLYP [None]
  - DRY SKIN [None]
